FAERS Safety Report 4966806-5 (Version None)
Quarter: 2006Q2

REPORT INFORMATION
  Report Type: 
  Country: None (occurrence: None)
  Receive Date: 20060407
  Receipt Date: 20060308
  Transmission Date: 20061013
  Serious: Yes (Hospitalization, Other)
  Sender: FDA-Public Use
  Company Number: JP-MERCK-0603USA02073

PATIENT
  Age: 15 Month
  Sex: Male
  Weight: 10 kg

DRUGS (6)
  1. DECADRON PHOSPHATE [Suspect]
     Indication: MENINGITIS
     Route: 042
     Dates: start: 20050502, end: 20050503
  2. AMIKACIN BANYU [Concomitant]
     Indication: MENINGITIS
     Route: 042
     Dates: start: 20050508, end: 20050519
  3. ROCEPHIN [Suspect]
     Indication: MENINGITIS
     Route: 042
     Dates: start: 20050502, end: 20050523
  4. ROCEPHIN [Suspect]
     Route: 051
  5. MEROPENEM [Concomitant]
     Indication: MENINGITIS
     Route: 042
     Dates: start: 20050502, end: 20050527
  6. FUTHAN [Concomitant]
     Indication: DISSEMINATED INTRAVASCULAR COAGULATION
     Route: 041
     Dates: start: 20050502, end: 20050506

REACTIONS (4)
  - CALCULUS URINARY [None]
  - DISSEMINATED INTRAVASCULAR COAGULATION [None]
  - GASTROINTESTINAL HAEMORRHAGE [None]
  - ORAL CANDIDIASIS [None]
